FAERS Safety Report 7222698-5 (Version None)
Quarter: 2011Q1

REPORT INFORMATION
  Report Type: 
  Country: None (occurrence: None)
  Receive Date: 20110112
  Receipt Date: 20101223
  Transmission Date: 20110831
  Serious: No
  Sender: FDA-Public Use
  Company Number: US-B.I. PHARMACEUTICALS,INC./RIDGEFIELD-2010-BP-15400BP

PATIENT
  Sex: Male

DRUGS (5)
  1. CRESTOR [Concomitant]
     Indication: BLOOD CHOLESTEROL INCREASED
  2. PRADAXA [Suspect]
     Indication: ATRIAL FIBRILLATION
     Dosage: 150 MG
     Route: 048
     Dates: start: 20101101
  3. ASPIRIN [Concomitant]
     Indication: PROPHYLAXIS
  4. FLOMAX [Concomitant]
     Indication: PROSTATOMEGALY
  5. COZAAR [Concomitant]
     Indication: HYPERTENSION

REACTIONS (1)
  - JOINT SWELLING [None]
